FAERS Safety Report 24673196 (Version 1)
Quarter: 2024Q4

REPORT INFORMATION
  Report Type: Spontaneous
  Country: US (occurrence: US)
  Receive Date: 20241128
  Receipt Date: 20241128
  Transmission Date: 20250115
  Serious: No
  Sender: IBSA INSTITUT BIOCHIMIQUE
  Company Number: US-IBSA PHARMA INC.-2024IBS000018

PATIENT

DRUGS (1)
  1. TIROSINT [Suspect]
     Active Substance: LEVOTHYROXINE SODIUM
     Indication: Product used for unknown indication
     Dosage: 100 MCG QD
     Route: 065
     Dates: end: 202312

REACTIONS (4)
  - Weight increased [Unknown]
  - Alopecia [Unknown]
  - Thinking abnormal [Unknown]
  - Insomnia [Unknown]
